FAERS Safety Report 8079195-7 (Version None)
Quarter: 2012Q1

REPORT INFORMATION
  Report Type: 
  Country: None (occurrence: None)
  Receive Date: 20120128
  Receipt Date: 20110809
  Transmission Date: 20120608
  Serious: No
  Sender: FDA-Public Use
  Company Number: US-ABBOTT-11P-163-0845530-00

PATIENT
  Sex: Female
  Weight: 69.916 kg

DRUGS (2)
  1. UNKNOWN ANTI-HYPERTENSIVE [Concomitant]
     Indication: PRODUCT USED FOR UNKNOWN INDICATION
  2. HUMIRA [Suspect]
     Indication: CROHN'S DISEASE
     Dosage: 2ND LOADING DOSE
     Route: 058
     Dates: start: 20110804

REACTIONS (1)
  - MIGRAINE [None]
